FAERS Safety Report 4740719-6 (Version None)
Quarter: 2005Q3

REPORT INFORMATION
  Report Type: 
  Country: None (occurrence: None)
  Receive Date: 20050729
  Receipt Date: 20050225
  Transmission Date: 20060218
  Serious: Yes (Other)
  Sender: FDA-Public Use
  Company Number: US-2005-002822

PATIENT
  Age: 39 Year
  Sex: Female
  Weight: 99.8 kg

DRUGS (2)
  1. MAGNEVIST [Suspect]
     Indication: NUCLEAR MAGNETIC RESONANCE IMAGING
     Dosage: 20 ML, 1 DOSE, INTRAVENOUS
     Route: 042
     Dates: start: 20050225, end: 20050225
  2. MAGNEVIST [Suspect]

REACTIONS (8)
  - ERYTHEMA [None]
  - HEADACHE [None]
  - NASAL CONGESTION [None]
  - OEDEMA PERIPHERAL [None]
  - SNEEZING [None]
  - SWELLING FACE [None]
  - URTICARIA [None]
  - WHEEZING [None]
